FAERS Safety Report 15778939 (Version 1)
Quarter: 2019Q1

REPORT INFORMATION
  Report Type: Spontaneous
  Country: FR (occurrence: FR)
  Receive Date: 20190101
  Receipt Date: 20190101
  Transmission Date: 20190417
  Serious: Yes (Other)
  Sender: FDA-Public Use
  Company Number: FR-AMGEN-FRANI2018185946

PATIENT
  Sex: Male
  Weight: 3.52 kg

DRUGS (2)
  1. ENBREL [Suspect]
     Active Substance: ETANERCEPT
     Indication: EXPOSURE DURING PREGNANCY
     Dosage: 25 MG, 2 TIMES/WK
     Route: 064
     Dates: start: 200312, end: 20040922
  2. PREDNISONE. [Suspect]
     Active Substance: PREDNISONE
     Indication: EXPOSURE DURING PREGNANCY
     Dosage: 5 MG, QD
     Route: 064

REACTIONS (5)
  - 21-hydroxylase deficiency [Unknown]
  - Jaundice neonatal [Recovered/Resolved]
  - Escherichia urinary tract infection [Unknown]
  - Maternal exposure during pregnancy [Unknown]
  - Adrenogenital syndrome [Unknown]

NARRATIVE: CASE EVENT DATE: 2005
